FAERS Safety Report 20178561 (Version 2)
Quarter: 2021Q4

REPORT INFORMATION
  Report Type: Report from Study
  Country: US (occurrence: US)
  Receive Date: 20211214
  Receipt Date: 20211216
  Transmission Date: 20220303
  Serious: Yes (Other)
  Sender: FDA-Public Use
  Company Number: US-JNJFOC-20211135307

PATIENT
  Sex: Female

DRUGS (2)
  1. STELARA [Suspect]
     Active Substance: USTEKINUMAB
     Indication: Crohn^s disease
     Route: 058
  2. STELARA [Suspect]
     Active Substance: USTEKINUMAB

REACTIONS (7)
  - Intestinal obstruction [Not Recovered/Not Resolved]
  - Pruritus [Unknown]
  - Thermal burn [Not Recovered/Not Resolved]
  - Product storage error [Unknown]
  - Injection site pain [Unknown]
  - Oropharyngeal pain [Unknown]
  - Needle issue [Unknown]

NARRATIVE: CASE EVENT DATE: 20210501
